FAERS Safety Report 10285179 (Version 1)
Quarter: 2014Q3

REPORT INFORMATION
  Report Type: Spontaneous
  Country: DE (occurrence: DE)
  Receive Date: 20140708
  Receipt Date: 20140708
  Transmission Date: 20150326
  Serious: Yes (Other)
  Sender: FDA-Public Use
  Company Number: DE-ACTAVIS-2014-14375

PATIENT
  Age: 63 Year
  Sex: Male

DRUGS (2)
  1. DOCETAXEL (UNKNOWN) [Suspect]
     Active Substance: DOCETAXEL
     Dosage: 60 MG/M2, UNK ON CYCLE 3
     Route: 065
  2. DOCETAXEL (UNKNOWN) [Suspect]
     Active Substance: DOCETAXEL
     Indication: PROSTATE CANCER METASTATIC
     Dosage: 75 MG/M2,EVERY 21 DAYS
     Route: 065

REACTIONS (1)
  - Recall phenomenon [Recovered/Resolved with Sequelae]
